FAERS Safety Report 24632834 (Version 1)
Quarter: 2024Q4

REPORT INFORMATION
  Report Type: Spontaneous
  Country: US (occurrence: US)
  Receive Date: 20241118
  Receipt Date: 20241118
  Transmission Date: 20250115
  Serious: No
  Sender: PERRIGO
  Company Number: US-PERRIGO-24US007330

PATIENT
  Age: 42 Year
  Sex: Female
  Weight: 62.132 kg

DRUGS (2)
  1. OPILL [Suspect]
     Active Substance: NORGESTREL
     Indication: Contraception
     Dosage: 0.075 MG, QD
     Route: 048
     Dates: start: 20240616, end: 20240728
  2. OPILL [Suspect]
     Active Substance: NORGESTREL
     Indication: Ovulation disorder

REACTIONS (5)
  - Menstrual clots [Not Recovered/Not Resolved]
  - Heavy menstrual bleeding [Recovering/Resolving]
  - Abdominal pain [Not Recovered/Not Resolved]
  - Abdominal pain upper [Not Recovered/Not Resolved]
  - Off label use [Recovered/Resolved]

NARRATIVE: CASE EVENT DATE: 20240616
